FAERS Safety Report 6698077-6 (Version None)
Quarter: 2010Q2

REPORT INFORMATION
  Report Type: 
  Country: None (occurrence: None)
  Receive Date: 20100427
  Receipt Date: 20100416
  Transmission Date: 20101027
  Serious: Yes (Disabling)
  Sender: FDA-Public Use
  Company Number: JP-JNJFOC-20090803806

PATIENT
  Sex: Female
  Weight: 44 kg

DRUGS (28)
  1. DOXORUBICIN HCL [Suspect]
     Indication: OVARIAN CANCER RECURRENT
     Dosage: CYCLE 1
     Route: 042
  2. MAGMITT [Concomitant]
     Route: 048
  3. MAGMITT [Concomitant]
     Route: 048
  4. GOSHA-JINKI-GAN [Concomitant]
     Route: 048
  5. LAMISIL [Concomitant]
     Dosage: 1-2 TIMES A DAY
     Route: 061
  6. AZUNOL [Concomitant]
     Indication: PROPHYLAXIS
     Route: 049
  7. PASTARON [Concomitant]
     Indication: PROPHYLAXIS
     Route: 061
  8. MYSLEE [Concomitant]
     Route: 048
  9. MYSLEE [Concomitant]
     Route: 048
  10. LOXONIN [Concomitant]
     Indication: PYREXIA
     Route: 048
  11. GRAN [Concomitant]
     Indication: NEUTROPHIL COUNT DECREASED
     Route: 058
  12. GRAN [Concomitant]
     Route: 058
  13. LEVOFLOXACIN [Concomitant]
     Indication: PYREXIA
     Route: 048
  14. LEVOFLOXACIN [Concomitant]
     Route: 048
  15. LEVOFLOXACIN [Concomitant]
     Indication: NEUTROPHIL COUNT DECREASED
     Route: 048
  16. LEVOFLOXACIN [Concomitant]
     Route: 048
  17. LOXONIN [Concomitant]
     Indication: GINGIVITIS
     Route: 048
  18. LOXONIN [Concomitant]
     Route: 048
  19. LOXONIN [Concomitant]
     Route: 048
  20. LOXONIN [Concomitant]
     Route: 048
  21. LOXONIN [Concomitant]
     Route: 048
  22. LOXONIN [Concomitant]
     Route: 048
  23. MAXIPIME [Concomitant]
     Indication: PYREXIA
     Route: 042
  24. MAXIPIME [Concomitant]
     Route: 042
  25. MAXIPIME [Concomitant]
     Indication: NEUTROPHIL COUNT DECREASED
     Route: 042
  26. MAXIPIME [Concomitant]
     Route: 042
  27. GENTAMICIN [Concomitant]
     Indication: RASH
     Route: 061
  28. CEFMETAZON [Concomitant]
     Indication: PYREXIA
     Route: 042

REACTIONS (2)
  - ILEUS [None]
  - PERITONITIS [None]
